FAERS Safety Report 15627678 (Version 16)
Quarter: 2020Q1

REPORT INFORMATION
  Report Type: Report from Study
  Country: NL (occurrence: NL)
  Receive Date: 20181116
  Receipt Date: 20200220
  Transmission Date: 20200409
  Serious: Yes (Death, Life-Threatening, Hospitalization)
  Sender: FDA-Public Use
  Company Number: NL-PFIZER INC-2018471008

PATIENT
  Age: 14 Year
  Sex: Female
  Weight: 47 kg

DRUGS (13)
  1. GRANISETRON [Concomitant]
     Active Substance: GRANISETRON
     Indication: NAUSEA
     Dosage: 2 MG, UNK
     Route: 048
     Dates: start: 20180522, end: 20180529
  2. FILGRASTIM [Concomitant]
     Active Substance: FILGRASTIM
     Indication: NEUTROPENIA
     Dosage: 235 UG, DAILY
     Route: 042
     Dates: start: 20180601, end: 20180607
  3. XALKORI [Suspect]
     Active Substance: CRIZOTINIB
     Indication: ANAPLASTIC LARGE-CELL LYMPHOMA
     Dosage: 150 MG/M2, 1X/DAY
     Route: 048
     Dates: start: 20180522, end: 20180601
  4. COTRIMOXAZOL [Concomitant]
     Active Substance: SULFAMETHOXAZOLE\TRIMETHOPRIM
     Indication: PROPHYLAXIS
     Dosage: 960 MG, 1X/DAY
     Route: 048
     Dates: start: 20180525, end: 20180606
  5. MORPHINE [Concomitant]
     Active Substance: MORPHINE
     Indication: PAIN
     Dosage: 1.4 MG, DAILY
     Route: 042
     Dates: start: 20180604, end: 20180605
  6. VANCOMYCIN [Concomitant]
     Active Substance: VANCOMYCIN
     Indication: PYREXIA
     Dosage: 2800 MG, DAILY
     Route: 042
     Dates: start: 20180602, end: 20180606
  7. MACROGOL [Concomitant]
     Active Substance: POLYETHYLENE GLYCOLS
     Indication: CONSTIPATION
     Dosage: 69 G, UNK
     Route: 048
     Dates: start: 20180603, end: 20180604
  8. VINBLASTINE [Suspect]
     Active Substance: VINBLASTINE
     Indication: ANAPLASTIC LARGE-CELL LYMPHOMA
     Dosage: 4.5 MG/M2, WEEKLY
     Route: 042
     Dates: start: 20180522, end: 20180529
  9. ACICLOVIR [Concomitant]
     Active Substance: ACYCLOVIR
     Indication: INFECTION
     Dosage: 1500 MG, DAILY
     Route: 042
     Dates: start: 20180605, end: 20180607
  10. GABAPENTINE [Concomitant]
     Active Substance: GABAPENTIN
     Indication: PAIN
     Dosage: 900 MG, DAILY
     Route: 048
     Dates: start: 20180601, end: 20180607
  11. CEFTAZIDIME. [Concomitant]
     Active Substance: CEFTAZIDIME
     Indication: PYREXIA
     Dosage: 6000 MG, DAILY
     Route: 042
     Dates: start: 20180601, end: 20180607
  12. AMITRIPTYLINE [Concomitant]
     Active Substance: AMITRIPTYLINE
     Indication: PAIN
     Dosage: 25 MG, DAILY
     Route: 048
     Dates: start: 20180605, end: 20180605
  13. PANTOPRAZOLE [Concomitant]
     Active Substance: PANTOPRAZOLE
     Indication: NAUSEA
     Dosage: 20 MG, UNK
     Route: 048
     Dates: start: 20180530, end: 20180607

REACTIONS (5)
  - Condition aggravated [Not Recovered/Not Resolved]
  - Decreased appetite [Not Recovered/Not Resolved]
  - Febrile neutropenia [Not Recovered/Not Resolved]
  - Mucormycosis [Fatal]
  - Hepatic failure [Fatal]

NARRATIVE: CASE EVENT DATE: 20180529
